FAERS Safety Report 7021568-5 (Version None)
Quarter: 2010Q3

REPORT INFORMATION
  Report Type: 
  Country: None (occurrence: None)
  Receive Date: 20100928
  Receipt Date: 20100915
  Transmission Date: 20110219
  Serious: Yes (Other)
  Sender: FDA-Public Use
  Company Number: ZYD-10-AE-233

PATIENT
  Age: 33 Year
  Sex: Male

DRUGS (1)
  1. RIBAVIRIN [Suspect]

REACTIONS (7)
  - DIZZINESS [None]
  - HAIR DISORDER [None]
  - HYPERHIDROSIS [None]
  - INFECTION [None]
  - PRURITUS [None]
  - RASH [None]
  - URINE OUTPUT DECREASED [None]
